FAERS Safety Report 22148265 (Version 1)
Quarter: 2023Q1

REPORT INFORMATION
  Report Type: Spontaneous
  Country: CN (occurrence: CN)
  Receive Date: 20230328
  Receipt Date: 20230328
  Transmission Date: 20230418
  Serious: Yes (Hospitalization, Other)
  Sender: FDA-Public Use
  Company Number: CN-ORGANON-O2303CHN001646

PATIENT
  Age: 27 Year
  Sex: Female
  Weight: 65 kg

DRUGS (8)
  1. FOLLITROPIN BETA [Suspect]
     Active Substance: FOLLITROPIN BETA
     Indication: Ovulation induction
     Dosage: STRENGTH REPORTED AS 600 INTERNATIONAL UNIT/0.72 MILLITER, 225 INTERNATIONAL UNIT, QD
     Route: 058
     Dates: start: 20230213, end: 20230220
  2. FOLLITROPIN BETA [Suspect]
     Active Substance: FOLLITROPIN BETA
  3. ORGALUTRAN [Suspect]
     Active Substance: GANIRELIX ACETATE
     Indication: Ovulation induction
     Dosage: STRENGTH REPORTED AS 0.5 MILLITER/0.25 MILLIGRAM , 0.25 MILLIGRAM, QD
     Route: 058
     Dates: start: 20230220, end: 20230222
  4. CHORIONIC GONADOTROPHIN [Suspect]
     Active Substance: CHORIOGONADOTROPIN ALFA
     Indication: Ovulation induction
     Dosage: 2000IU, QD
     Route: 030
     Dates: start: 20230223, end: 20230223
  5. FOLLITROPIN ALFA [Suspect]
     Active Substance: FOLLITROPIN ALFA
     Indication: Ovulation induction
     Dosage: 5.5UG, QD
     Route: 058
     Dates: start: 20230220, end: 20230220
  6. CHORIOGONADOTROPIN ALFA [Suspect]
     Active Substance: CHORIOGONADOTROPIN ALFA
     Indication: Ovulation induction
     Dosage: 250UG, QD
     Route: 058
     Dates: start: 20230223, end: 20230223
  7. RECOMBINANT HUMAN SOMATROPIN [Concomitant]
     Indication: Ovulation induction
     Dosage: 3IU, QD
     Dates: start: 20230213, end: 20230223
  8. RECOMBINANT HUMAN SOMATROPIN [Concomitant]
     Dosage: 6IU, QD
     Dates: start: 20230220, end: 20230220

REACTIONS (3)
  - Ovarian hyperstimulation syndrome [Recovering/Resolving]
  - Ascites [Unknown]
  - Pleural effusion [Unknown]

NARRATIVE: CASE EVENT DATE: 20230228
